FAERS Safety Report 6726833-4 (Version None)
Quarter: 2010Q2

REPORT INFORMATION
  Report Type: 
  Country: None (occurrence: None)
  Receive Date: 20100516
  Receipt Date: 20100512
  Transmission Date: 20101027
  Serious: Yes (Death, Life-Threatening, Hospitalization)
  Sender: FDA-Public Use
  Company Number: JP-JNJFOC-20100502609

PATIENT
  Age: 80 Year
  Sex: Female

DRUGS (18)
  1. DUROTEP MT [Suspect]
     Indication: ANALGESIC THERAPY
     Route: 062
  2. DUROTEP MT [Suspect]
     Indication: CANCER PAIN
     Route: 062
  3. PROCHLORPERAZINE [Concomitant]
     Route: 048
  4. NORVASC [Concomitant]
     Route: 048
  5. MUCOSTA [Concomitant]
     Route: 048
  6. MYONAL [Concomitant]
     Route: 048
  7. MEDICON [Concomitant]
     Route: 048
  8. BIOFERMIN [Concomitant]
     Route: 048
  9. LOXONIN [Concomitant]
     Route: 048
  10. TAKEPRON [Concomitant]
     Route: 048
  11. MAGMITT [Concomitant]
     Route: 048
  12. PURSENNID [Concomitant]
     Route: 048
  13. RESLIN [Concomitant]
     Route: 048
  14. MYSLEE [Concomitant]
     Route: 048
  15. AZUNOL ST [Concomitant]
     Route: 065
  16. OPSO [Concomitant]
     Route: 048
  17. LENDORMIN D [Concomitant]
     Route: 048
  18. MYSLEE [Concomitant]
     Route: 048

REACTIONS (3)
  - DEPRESSED LEVEL OF CONSCIOUSNESS [None]
  - PNEUMONIA [None]
  - RESPIRATORY DEPRESSION [None]
